FAERS Safety Report 6144647-3 (Version None)
Quarter: 2009Q2

REPORT INFORMATION
  Report Type: 
  Country: None (occurrence: None)
  Receive Date: 20090406
  Receipt Date: 20090325
  Transmission Date: 20091009
  Serious: Yes (Other)
  Sender: FDA-Public Use
  Company Number: A0767960A

PATIENT
  Age: 66 Year
  Sex: Female
  Weight: 79 kg

DRUGS (12)
  1. TYKERB [Suspect]
     Indication: BREAST CANCER
     Dosage: 1500MG PER DAY
     Route: 048
     Dates: start: 20080801
  2. XELODA [Suspect]
     Indication: BREAST CANCER
     Dosage: 1500MG TWICE PER DAY
     Dates: start: 20090101, end: 20090301
  3. LEVOTHYROXINE SODIUM [Concomitant]
     Dosage: 112MCG PER DAY
     Route: 048
  4. ENALAPRIL MALEATE AND HYDROCHLOROTHIAZIDE [Concomitant]
     Route: 048
  5. SIMVASTATIN [Concomitant]
     Route: 048
  6. TRICOR [Concomitant]
     Dosage: 145MG PER DAY
     Route: 048
  7. FISH OIL [Concomitant]
     Dosage: 1000MG TWICE PER DAY
     Route: 048
  8. VITAMIN [Concomitant]
     Route: 048
  9. ACTONEL [Concomitant]
     Dosage: 150MG MONTHLY
     Route: 048
  10. CITRACAL [Concomitant]
  11. MECLIZINE [Concomitant]
     Dosage: 12.5MG AS DIRECTED
     Route: 065
  12. CEPHALEXIN [Concomitant]
     Dosage: 250MG FOUR TIMES PER DAY

REACTIONS (12)
  - CYST [None]
  - DIARRHOEA [None]
  - DISEASE PROGRESSION [None]
  - FATIGUE [None]
  - GASTROOESOPHAGEAL REFLUX DISEASE [None]
  - HILAR LYMPHADENOPATHY [None]
  - LYMPHADENOPATHY [None]
  - MUCOSAL INFLAMMATION [None]
  - PALMAR-PLANTAR ERYTHRODYSAESTHESIA SYNDROME [None]
  - PRURITUS [None]
  - RASH [None]
  - STOMATITIS [None]
